FAERS Safety Report 19432100 (Version 2)
Quarter: 2021Q2

REPORT INFORMATION
  Report Type: Spontaneous
  Country: US (occurrence: US)
  Receive Date: 20210617
  Receipt Date: 20210622
  Transmission Date: 20210717
  Serious: No
  Sender: FDA-Public Use
  Company Number: NVSC2021US136892

PATIENT
  Age: 79 Year
  Sex: Female

DRUGS (2)
  1. VOLTAREN [Suspect]
     Active Substance: DICLOFENAC SODIUM
     Indication: ARTHRITIS
     Dosage: UNK
     Route: 065
     Dates: start: 201303
  2. VOLTAREN [Suspect]
     Active Substance: DICLOFENAC SODIUM
     Indication: BACK PAIN
     Dosage: UNK, START DATE: APRIL OR MAY
     Route: 065

REACTIONS (4)
  - Product administered at inappropriate site [Recovered/Resolved]
  - Drug effective for unapproved indication [Recovered/Resolved]
  - Expired product administered [Unknown]
  - Incorrect product administration duration [Recovered/Resolved]
